FAERS Safety Report 20799342 (Version 5)
Quarter: 2022Q2

REPORT INFORMATION
  Report Type: Spontaneous
  Country: FR (occurrence: FR)
  Receive Date: 20220508
  Receipt Date: 20220624
  Transmission Date: 20220721
  Serious: Yes (Other)
  Sender: FDA-Public Use
  Company Number: FR-AMERICAN REGENT INC-2022001244

PATIENT
  Age: 39 Year
  Sex: Female
  Weight: 55 kg

DRUGS (2)
  1. VENOFER [Suspect]
     Active Substance: IRON SUCROSE
     Indication: Product used for unknown indication
     Dosage: 200 MILLIGRAM
     Dates: start: 2019, end: 2019
  2. VENOFER [Suspect]
     Active Substance: IRON SUCROSE
     Dosage: 200 MG (WITH INTERVAL OF 48 HRS)
     Dates: start: 2019, end: 2019

REACTIONS (2)
  - Deep vein thrombosis [Unknown]
  - Superficial vein thrombosis [Unknown]

NARRATIVE: CASE EVENT DATE: 20190101
